FAERS Safety Report 6837444-4 (Version None)
Quarter: 2010Q3

REPORT INFORMATION
  Report Type: 
  Country: None (occurrence: None)
  Receive Date: 20100713
  Receipt Date: 20070510
  Transmission Date: 20110219
  Serious: Yes (Other)
  Sender: FDA-Public Use
  Company Number: US-PFIZER INC-2007038488

PATIENT
  Sex: Male
  Weight: 97.727 kg

DRUGS (4)
  1. CHANTIX [Suspect]
     Indication: SMOKING CESSATION THERAPY
     Dates: start: 20070401
  2. MICARDIS [Suspect]
     Indication: BLOOD PRESSURE
     Dosage: 80MG/25MG
     Dates: start: 20070507
  3. MONTELUKAST [Concomitant]
  4. LOTREL [Concomitant]
     Dosage: 5MG/20MG
     Dates: end: 20070507

REACTIONS (5)
  - BLOOD CHOLESTEROL INCREASED [None]
  - COLD SWEAT [None]
  - DYSPNOEA [None]
  - INSOMNIA [None]
  - RESTLESSNESS [None]
